FAERS Safety Report 7134816-8 (Version None)
Quarter: 2010Q4

REPORT INFORMATION
  Report Type: 
  Country: None (occurrence: None)
  Receive Date: 20101203
  Receipt Date: 20060922
  Transmission Date: 20110411
  Serious: Yes (Other)
  Sender: FDA-Public Use
  Company Number: NL-ROCHE-745404

PATIENT

DRUGS (1)
  1. HERCEPTIN [Suspect]
     Route: 042

REACTIONS (1)
  - BILIARY FIBROSIS [None]
